FAERS Safety Report 9449191 (Version 1)
Quarter: 2013Q3

REPORT INFORMATION
  Report Type: Spontaneous
  Country: US (occurrence: US)
  Receive Date: 20130808
  Receipt Date: 20130808
  Transmission Date: 20140515
  Serious: Yes (Hospitalization)
  Sender: FDA-Public Use
  Company Number: US-B.I. PHARMACEUTICALS,INC./RIDGEFIELD-2013-BI-23509BP

PATIENT
  Age: 69 Year
  Sex: Male

DRUGS (15)
  1. SPIRIVA [Suspect]
     Indication: EMPHYSEMA
     Dosage: 18 MCG
     Route: 048
     Dates: start: 2010
  2. SPIRIVA [Suspect]
     Dosage: 18 MCG
     Route: 055
     Dates: start: 2010
  3. ASPIRIN [Concomitant]
     Dosage: 81 MG
     Route: 048
  4. MINOCYCLINE [Concomitant]
     Indication: ROSACEA
     Dosage: 200 MG
     Route: 048
  5. ALLOPURINOL [Concomitant]
     Indication: GOUT
     Dosage: 300 MG
     Route: 048
  6. EFFIENT [Concomitant]
     Dosage: 10 MG
     Route: 048
  7. POTASSIUM [Concomitant]
     Dosage: 10 MEQ
     Route: 048
  8. MULTIVITAMIN [Concomitant]
     Route: 048
  9. ADVAIR [Concomitant]
     Indication: EMPHYSEMA
     Dosage: STRENGTH: 250/50 MG; DAILY DOSE: 500/100 MG
     Route: 055
  10. WARFARIN [Concomitant]
     Dosage: 5MG ALTERNATING WITH 2.5 MG DAILY
     Route: 048
  11. METFORMIN [Concomitant]
     Indication: DIABETES MELLITUS
     Dosage: 500 MG
     Route: 048
  12. CARVEDILOL [Concomitant]
     Indication: HYPERTENSION
     Dosage: 12.5 MG
     Route: 048
  13. CELEXA [Concomitant]
     Indication: DEPRESSION
     Dosage: 20 MG
     Route: 048
  14. ENALAPRIL [Concomitant]
     Indication: HYPERTENSION
     Dosage: 10 MG
     Route: 048
  15. WELLBUTRIN [Concomitant]
     Indication: DEPRESSION
     Dosage: 200 MG
     Route: 048

REACTIONS (6)
  - Myocardial infarction [Recovered/Resolved]
  - Blood urine present [Not Recovered/Not Resolved]
  - Fall [Recovered/Resolved]
  - Dizziness [Not Recovered/Not Resolved]
  - Blood cholesterol increased [Not Recovered/Not Resolved]
  - Incorrect route of drug administration [Recovered/Resolved]
